FAERS Safety Report 25673682 (Version 3)
Quarter: 2025Q3

REPORT INFORMATION
  Report Type: Report from Study
  Country: MX (occurrence: MX)
  Receive Date: 20250813
  Receipt Date: 20250911
  Transmission Date: 20251020
  Serious: Yes (Hospitalization, Other)
  Sender: BIOVITRUM
  Company Number: MX-AstraZeneca-CH-00776764A

PATIENT
  Age: 8 Week
  Sex: Female
  Weight: 5.835 kg

DRUGS (6)
  1. PALIVIZUMAB [Suspect]
     Active Substance: PALIVIZUMAB
     Indication: Antiviral prophylaxis
     Route: 030
  2. PALIVIZUMAB [Suspect]
     Active Substance: PALIVIZUMAB
     Route: 030
     Dates: start: 20250407, end: 20250407
  3. PALIVIZUMAB [Suspect]
     Active Substance: PALIVIZUMAB
     Route: 030
     Dates: start: 20250506, end: 20250506
  4. PALIVIZUMAB [Suspect]
     Active Substance: PALIVIZUMAB
     Route: 030
     Dates: start: 20250603, end: 20250603
  5. PALIVIZUMAB [Suspect]
     Active Substance: PALIVIZUMAB
     Route: 030
     Dates: start: 20250806, end: 20250806
  6. ACETAMINOPHEN [Concomitant]
     Active Substance: ACETAMINOPHEN
     Indication: Pain
     Route: 065
     Dates: start: 20241227

REACTIONS (7)
  - Diaphragmatic paralysis [Not Recovered/Not Resolved]
  - Increased bronchial secretion [Not Recovered/Not Resolved]
  - Dyspnoea [Not Recovered/Not Resolved]
  - Pneumonia [Not Recovered/Not Resolved]
  - Respiratory syncytial virus infection [Not Recovered/Not Resolved]
  - Product dose omission issue [Unknown]
  - Urinary tract infection [Not Recovered/Not Resolved]

NARRATIVE: CASE EVENT DATE: 20241201
